FAERS Safety Report 6964041-2 (Version None)
Quarter: 2010Q3

REPORT INFORMATION
  Report Type: 
  Country: None (occurrence: None)
  Receive Date: 20100902
  Receipt Date: 20100902
  Transmission Date: 20110219
  Serious: Yes (Hospitalization)
  Sender: FDA-Public Use
  Company Number: None

PATIENT
  Age: 69 Year
  Sex: Female
  Weight: 55.8 kg

DRUGS (8)
  1. BEVACIZUMAB (OFF STUDY MAINTENANCE) [Suspect]
     Indication: NON-SMALL CELL LUNG CANCER
     Dosage: 837MG,IV DAY 1, Q3 WKS
     Route: 042
     Dates: start: 20100818
  2. BUDESONIDE [Concomitant]
  3. POTASSIUM CHLORIDE [Concomitant]
  4. VENLAFAXINE HCL [Concomitant]
  5. ALBUTEROL SULATE [Concomitant]
  6. WARFARIN [Concomitant]
  7. OXYCODONE HCL [Concomitant]
  8. DIGOXIN [Concomitant]

REACTIONS (7)
  - ACUTE RESPIRATORY FAILURE [None]
  - DEEP VEIN THROMBOSIS [None]
  - DISEASE PROGRESSION [None]
  - LUNG INFECTION [None]
  - MALIGNANT PLEURAL EFFUSION [None]
  - NON-SMALL CELL LUNG CANCER [None]
  - PNEUMONIA [None]
